FAERS Safety Report 11678341 (Version 2)
Quarter: 2015Q4

REPORT INFORMATION
  Report Type: Spontaneous
  Country: US (occurrence: US)
  Receive Date: 20151027
  Receipt Date: 20151110
  Transmission Date: 20160304
  Serious: No
  Sender: FDA-Public Use
  Company Number: US-ELI_LILLY_AND_COMPANY-US201011000543

PATIENT
  Age: 80 Year
  Sex: Female

DRUGS (3)
  1. FORTEO [Suspect]
     Active Substance: TERIPARATIDE
     Dosage: 20 UG, QD
     Route: 065
     Dates: end: 201204
  2. FORTEO [Suspect]
     Active Substance: TERIPARATIDE
     Dosage: 20 UG, QD
     Route: 065
  3. FORTEO [Suspect]
     Active Substance: TERIPARATIDE
     Indication: OSTEOPOROSIS
     Dosage: 20 UG, QD
     Route: 065
     Dates: start: 201008

REACTIONS (13)
  - Back pain [Unknown]
  - Blood urine present [Recovered/Resolved]
  - Neck pain [Unknown]
  - Musculoskeletal pain [Unknown]
  - Bladder pain [Unknown]
  - Nerve injury [Unknown]
  - Pain [Unknown]
  - Intentional product misuse [Unknown]
  - Malaise [Unknown]
  - Pain in extremity [Unknown]
  - Injection site bruising [Unknown]
  - Bladder disorder [Unknown]
  - Gait disturbance [Unknown]

NARRATIVE: CASE EVENT DATE: 201008
